FAERS Safety Report 8338213-9 (Version None)
Quarter: 2012Q1

REPORT INFORMATION
  Report Type: 
  Country: None (occurrence: None)
  Receive Date: 20120329
  Receipt Date: 20091207
  Transmission Date: 20120608
  Serious: No
  Sender: FDA-Public Use
  Company Number: PHEH2009US12929

PATIENT
  Sex: Female

DRUGS (4)
  1. HERBAL PREPARATION [Concomitant]
  2. VITAMIN TAB [Concomitant]
  3. COARTEM/RIAMET (ARTEMETHER, BENFLUMETOL) UNKNOWN [Suspect]
  4. LISINOPRIL [Concomitant]

REACTIONS (3)
  - HOT FLUSH [None]
  - CHEST PAIN [None]
  - DRUG ADMINISTRATION ERROR [None]
